FAERS Safety Report 24957632 (Version 1)
Quarter: 2025Q1

REPORT INFORMATION
  Report Type: Spontaneous
  Country: CA (occurrence: CA)
  Receive Date: 20250212
  Receipt Date: 20250212
  Transmission Date: 20250409
  Serious: Yes (Other)
  Sender: AUROBINDO
  Company Number: CA-AUROBINDO-AUR-APL-2025-006601

PATIENT
  Age: 13 Year
  Weight: 43.09 kg

DRUGS (1)
  1. FLUOXETINE [Suspect]
     Active Substance: FLUOXETINE HYDROCHLORIDE
     Indication: Depression
     Dosage: 10 MILLIGRAM, ONCE A DAY
     Route: 048

REACTIONS (9)
  - Social avoidant behaviour [Recovering/Resolving]
  - Anhedonia [Recovering/Resolving]
  - Apathy [Recovering/Resolving]
  - Brain fog [Recovering/Resolving]
  - Confusional state [Recovering/Resolving]
  - Defiant behaviour [Recovering/Resolving]
  - Fatigue [Recovering/Resolving]
  - Flat affect [Recovering/Resolving]
  - Lack of empathy [Recovering/Resolving]
